FAERS Safety Report 8920648 (Version 2)
Quarter: 2012Q4

REPORT INFORMATION
  Report Type: 
  Country: CN (occurrence: CN)
  Receive Date: 20121122
  Receipt Date: 20121128
  Transmission Date: 20130627
  Serious: Yes (Death, Hospitalization, Other)
  Sender: FDA-Public Use
  Company Number: CN-MERCK-1211CHN008307

PATIENT
  Age: 59 Year
  Sex: Female

DRUGS (2)
  1. SINEMET [Suspect]
     Indication: PARKINSON^S DISEASE
     Dosage: 25mg/100mg, qid
     Route: 048
     Dates: start: 200806
  2. LUMINAL [Suspect]
     Indication: SEDATION
     Dosage: UNK
     Dates: start: 20121106

REACTIONS (7)
  - Coronary artery disease [Fatal]
  - Constipation [Unknown]
  - Urinary tract obstruction [Unknown]
  - Epilepsy [Recovered/Resolved]
  - Aphasia [Unknown]
  - Deafness [Unknown]
  - Dyspnoea [Unknown]
